FAERS Safety Report 9969212 (Version 2)
Quarter: 2014Q1

REPORT INFORMATION
  Report Type: Report from Study
  Country: AU (occurrence: AU)
  Receive Date: 20140306
  Receipt Date: 20140324
  Transmission Date: 20141002
  Serious: Yes (Hospitalization)
  Sender: FDA-Public Use
  Company Number: AU-AMGEN-AUSCT2014014807

PATIENT
  Age: 59 Year
  Sex: Male

DRUGS (3)
  1. PANITUMUMAB [Suspect]
     Indication: COLORECTAL CANCER
     Dosage: 680 MG, UNK
     Route: 042
     Dates: start: 20131029, end: 20140207
  2. EVEROLIMUS [Concomitant]
     Indication: COLORECTAL CANCER
     Dosage: 5 MG, UNK
     Route: 048
     Dates: start: 20131029, end: 20140207
  3. IRINOTECAN [Concomitant]
     Indication: COLORECTAL CANCER
     Dosage: 330 MG, UNK
     Route: 042
     Dates: start: 20131029, end: 20140220

REACTIONS (1)
  - Pneumothorax [Not Recovered/Not Resolved]
